FAERS Safety Report 6901227-7 (Version None)
Quarter: 2010Q3

REPORT INFORMATION
  Report Type: 
  Country: None (occurrence: None)
  Receive Date: 20100708
  Receipt Date: 20100427
  Transmission Date: 20110219
  Serious: Yes (Other)
  Sender: FDA-Public Use
  Company Number: 2010018982

PATIENT
  Age: 49 Year
  Sex: Male
  Weight: 105.7 kg

DRUGS (3)
  1. CHANTIX [Suspect]
     Dates: start: 20060901, end: 20070101
  2. METFORMIN HCL [Concomitant]
  3. GLYBURIDE [Concomitant]

REACTIONS (1)
  - DIABETES MELLITUS INADEQUATE CONTROL [None]
